FAERS Safety Report 12712164 (Version 5)
Quarter: 2017Q1

REPORT INFORMATION
  Report Type: Spontaneous
  Country: US (occurrence: US)
  Receive Date: 20160902
  Receipt Date: 20170222
  Transmission Date: 20170428
  Serious: No
  Sender: FDA-Public Use
  Company Number: US-PFIZER INC-2016413701

PATIENT
  Age: 70 Year
  Sex: Female

DRUGS (3)
  1. LETROZOLE. [Concomitant]
     Active Substance: LETROZOLE
     Dosage: UNK
  2. IBRANCE [Suspect]
     Active Substance: PALBOCICLIB
     Indication: NEOPLASM MALIGNANT
     Dosage: 75 MG, CYCLIC (21 DAYS THEN REST FOR 7 DAYS)
     Route: 048
  3. IBRANCE [Suspect]
     Active Substance: PALBOCICLIB
     Dosage: 75 MG, CYCLIC (ONCE A DAY FOR 14 DAYS ON AND 7 DAYS OFF)(ONCE A DAY FOR 14 DAYS ON AND 7 DAYS OFF)
     Route: 048
     Dates: end: 201701

REACTIONS (6)
  - Rash pruritic [Unknown]
  - Tooth infection [Unknown]
  - Laceration [Unknown]
  - Rash maculo-papular [Unknown]
  - Influenza [Unknown]
  - Paraesthesia [Unknown]
